FAERS Safety Report 24410215 (Version 1)
Quarter: 2024Q4

REPORT INFORMATION
  Report Type: Spontaneous
  Country: US (occurrence: US)
  Receive Date: 20241008
  Receipt Date: 20241008
  Transmission Date: 20250115
  Serious: Yes (Hospitalization, Other)
  Sender: HIKMA
  Company Number: US-MLMSERVICE-20240919-PI197896-00072-1

PATIENT

DRUGS (6)
  1. BUPIVACAINE [Suspect]
     Active Substance: BUPIVACAINE
     Indication: Local anaesthesia
     Dosage: UNKNOWN, THE WOUND EDGES AND SUBCUTANEOUS TISSUES WERE INFILTRATED WITH LESS THAN 10 ML OF 0.5% BUPI
     Route: 065
  2. ACETAMINOPHEN [Concomitant]
     Active Substance: ACETAMINOPHEN
     Indication: Analgesic therapy
     Dosage: UNKNOWN
     Route: 065
  3. EPINEPHRINE [Concomitant]
     Active Substance: EPINEPHRINE
     Indication: Product used for unknown indication
     Dosage: UNKNOWN, 8 ML OF 1% LIDOCAINE WITH EPINEPHRINE BUFFERED WITH 2 ML OF SODIUM BICARBONATE ON A 25 G NE
     Route: 065
  4. IBUPROFEN [Concomitant]
     Active Substance: IBUPROFEN
     Indication: Analgesic therapy
     Dosage: UNKNOWN
     Route: 065
  5. LIDOCAINE [Concomitant]
     Active Substance: LIDOCAINE
     Indication: Local anaesthesia
     Dosage: 8 MILLILITER, 8 ML OF 1% LIDOCAINE WITH EPINEPHRINE BUFFERED WITH 2 ML OF SODIUM BICARBONATE ON A 25
     Route: 065
  6. SODIUM BICARBONATE [Concomitant]
     Active Substance: SODIUM BICARBONATE
     Indication: Product used for unknown indication
     Dosage: 2 MILLILITER, 8 ML OF 1% LIDOCAINE WITH EPINEPHRINE BUFFERED WITH 2 ML OF SODIUM BICARBONATE ON A 25
     Route: 065

REACTIONS (1)
  - Drug-induced liver injury [Recovering/Resolving]
